FAERS Safety Report 9837167 (Version 1)
Quarter: 2013Q4

REPORT INFORMATION
  Report Type: Spontaneous
  Country: US (occurrence: None)
  Receive Date: 20131205
  Receipt Date: 20131205
  Transmission Date: 20140711
  Serious: Yes (Other)
  Sender: FDA-Public Use
  Company Number: 163-POMAL-13091925

PATIENT
  Age: 64 Year
  Sex: Female

DRUGS (13)
  1. POMALYST(POMALIDOMIDE)(2 MILLIGRAM, CAPSULES) [Suspect]
     Indication: PLASMA CELL MYELOMA
     Dosage: 2 MG, 21 IN 28 D PO
     Route: 048
     Dates: start: 20130716
  2. AGGRENOX [Concomitant]
  3. PRINZIDE [Concomitant]
  4. VITAMIN B-12 [Concomitant]
  5. VITAMIN D [Concomitant]
  6. ASPIRIN [Concomitant]
  7. GABAPENTIN [Concomitant]
  8. METFORMIN [Concomitant]
  9. SYNTHROID [Concomitant]
  10. POTASSIUM [Concomitant]
  11. PLAVIX [Concomitant]
  12. CELEBREX [Concomitant]
  13. COLACE [Concomitant]

REACTIONS (2)
  - Eye swelling [None]
  - Rash [None]
